FAERS Safety Report 17116371 (Version 1)
Quarter: 2019Q4

REPORT INFORMATION
  Report Type: Spontaneous
  Country: RO (occurrence: RO)
  Receive Date: 20191205
  Receipt Date: 20191205
  Transmission Date: 20200122
  Serious: Yes (Other)
  Sender: FDA-Public Use
  Company Number: RO-AMGEN-ROUSP2019200898

PATIENT
  Age: 63 Year

DRUGS (9)
  1. NPLATE [Suspect]
     Active Substance: ROMIPLOSTIM
     Dosage: 240 MICROGRAM (3 MCG/KG)
     Route: 058
  2. ADRENALINE [EPINEPHRINE] [Concomitant]
     Active Substance: EPINEPHRINE
     Dosage: UNK
  3. ASPENTER [Concomitant]
     Active Substance: ASPIRIN
     Dosage: 75 MILLIGRAM, QD
     Dates: start: 20180906, end: 201810
  4. VENOFER [Concomitant]
     Active Substance: IRON SUCROSE
     Dosage: UNK
  5. NPLATE [Suspect]
     Active Substance: ROMIPLOSTIM
     Indication: IMMUNE THROMBOCYTOPENIC PURPURA
     Dosage: 80 MICROGRAM (1 MCG/KG)
     Route: 058
     Dates: start: 201803
  6. NPLATE [Suspect]
     Active Substance: ROMIPLOSTIM
     Dosage: 249 MICROGRAM, QWK
     Route: 058
  7. BRILIQUE [Concomitant]
     Active Substance: TICAGRELOR
     Dosage: 90 MILLIGRAM, BID
  8. NPLATE [Suspect]
     Active Substance: ROMIPLOSTIM
     Dosage: 160 MICROGRAM (2 MCG/KG)
     Route: 058
  9. DEXAMETHASONE. [Concomitant]
     Active Substance: DEXAMETHASONE
     Dosage: UNK

REACTIONS (3)
  - Gastric ulcer [Unknown]
  - Off label use [Unknown]
  - Coronary artery stenosis [Recovering/Resolving]

NARRATIVE: CASE EVENT DATE: 201809
